FAERS Safety Report 10619528 (Version 3)
Quarter: 2014Q4

REPORT INFORMATION
  Report Type: Spontaneous
  Country: BR (occurrence: BR)
  Receive Date: 20141202
  Receipt Date: 20141224
  Transmission Date: 20150529
  Serious: Yes (Other)
  Sender: FDA-Public Use
  Company Number: BR-PFIZER INC-2014323033

PATIENT
  Age: 55 Year
  Sex: Male
  Weight: 68 kg

DRUGS (2)
  1. ATENSINA [Concomitant]
     Active Substance: CLONIDINE
     Indication: HYPERTENSION
     Dosage: 0.1 MG, ONCE DAILY
     Dates: start: 2014
  2. CHAMPIX [Suspect]
     Active Substance: VARENICLINE TARTRATE
     Indication: SMOKING CESSATION THERAPY
     Dosage: 1 TABLET, TWICE A DAY
     Route: 048
     Dates: start: 20141001

REACTIONS (3)
  - Eyelid disorder [Unknown]
  - Eyelid oedema [Unknown]
  - Asthenia [Unknown]

NARRATIVE: CASE EVENT DATE: 201411
